FAERS Safety Report 21136140 (Version 3)
Quarter: 2022Q3

REPORT INFORMATION
  Report Type: Spontaneous
  Country: US (occurrence: US)
  Receive Date: 20220727
  Receipt Date: 20220930
  Transmission Date: 20221027
  Serious: Yes (Death, Other)
  Sender: FDA-Public Use
  Company Number: US-TEVA-2022-US-2059760

PATIENT
  Age: 68 Year
  Sex: Male
  Weight: 83 kg

DRUGS (24)
  1. VALSARTAN [Suspect]
     Active Substance: VALSARTAN
     Indication: Hypertension
     Dosage: 80 MG
     Route: 065
     Dates: start: 20150611, end: 20160129
  2. VALSARTAN [Suspect]
     Active Substance: VALSARTAN
     Dosage: 80 MG
     Route: 065
     Dates: start: 2015
  3. VALSARTAN [Suspect]
     Active Substance: VALSARTAN
     Indication: Hypertension
     Dosage: 40 MG
     Route: 065
     Dates: start: 20160509, end: 20180726
  4. VALSARTAN [Suspect]
     Active Substance: VALSARTAN
     Indication: Hypertension
     Dosage: 80 MG
     Route: 065
     Dates: start: 20160307, end: 20160406
  5. VALSARTAN [Suspect]
     Active Substance: VALSARTAN
     Dosage: 40 MG
     Route: 065
     Dates: start: 2016
  6. VALSARTAN [Suspect]
     Active Substance: VALSARTAN
     Indication: Hypertension
     Dosage: 80 MG
     Route: 065
     Dates: start: 20140912, end: 20150611
  7. NEXIUM [Concomitant]
     Active Substance: ESOMEPRAZOLE MAGNESIUM
     Indication: Gastrooesophageal reflux disease
     Dosage: 80 MILLIGRAM DAILY; 40 MG TWICE DAILY
     Route: 065
     Dates: start: 20060705, end: 20220418
  8. CELLCEPT [Concomitant]
     Active Substance: MYCOPHENOLATE MOFETIL
     Indication: Scleroderma
     Dosage: 3000 MILLIGRAM DAILY; 3 TABLET TWICE DAILY
     Route: 065
     Dates: start: 20071101, end: 20220418
  9. AMBIEN [Concomitant]
     Active Substance: ZOLPIDEM TARTRATE
     Indication: Insomnia
     Dosage: 10 MILLIGRAM DAILY;
     Route: 065
     Dates: start: 20140101, end: 20180101
  10. AMLODIPINE BESYLATE [Concomitant]
     Active Substance: AMLODIPINE BESYLATE
     Indication: Hypertension
     Dosage: 10 MILLIGRAM DAILY;
     Route: 065
     Dates: start: 20060705, end: 20220418
  11. RITALIN [Concomitant]
     Active Substance: METHYLPHENIDATE HYDROCHLORIDE
     Indication: Attention deficit hyperactivity disorder
     Dosage: 15 MILLIGRAM DAILY; 5 MG THREE TIMES DAILY
     Route: 065
     Dates: start: 2010, end: 20220418
  12. GABAPENTIN [Concomitant]
     Active Substance: GABAPENTIN
     Indication: Nervous system disorder
     Dosage: 100 MILLIGRAM DAILY;
     Route: 065
     Dates: start: 20140701, end: 20220418
  13. TRAMADOL [Concomitant]
     Active Substance: TRAMADOL
     Indication: Pain
     Dosage: 50 MILLIGRAM DAILY;
     Route: 065
     Dates: start: 20140310, end: 20220418
  14. HYDROXYCHLOROQUINE [Concomitant]
     Active Substance: HYDROXYCHLOROQUINE
     Indication: Scleroderma
     Dosage: 400 MILLIGRAM DAILY; 200 MG TWICE DAILY
     Route: 065
     Dates: start: 201211, end: 20220418
  15. CLONAZEPAM [Concomitant]
     Active Substance: CLONAZEPAM
     Indication: Anxiety
     Dosage: 3 MILLIGRAM DAILY; 1 MG THREE TIMES DAILY
     Route: 065
     Dates: start: 20061101, end: 20180101
  16. XANAX [Concomitant]
     Active Substance: ALPRAZOLAM
     Indication: Anxiety
     Dosage: 45 MILLIGRAM DAILY; 15 MG THREE TIMES DAILY
     Route: 065
     Dates: start: 20061101, end: 20220418
  17. RANITIDINE [Concomitant]
     Active Substance: RANITIDINE
     Indication: Gastrooesophageal reflux disease
     Dosage: 300 MILLIGRAM DAILY;
     Route: 065
     Dates: start: 20071101, end: 20180701
  18. ZOLPIDEM [Concomitant]
     Active Substance: ZOLPIDEM TARTRATE
     Indication: Insomnia
     Dosage: 12.5 MILLIGRAM DAILY; ONCE A DAY AT NIGHT
     Route: 065
     Dates: start: 20130516, end: 20180630
  19. VITAMIN D [Concomitant]
     Active Substance: VITAMIN D NOS
     Indication: Hypovitaminosis
     Dosage: 2000 MILLIGRAM DAILY;
     Route: 065
     Dates: start: 20140707, end: 20220418
  20. HARVONI [Concomitant]
     Active Substance: LEDIPASVIR\SOFOSBUVIR
     Indication: Hepatitis C
     Route: 065
  21. FOLIC ACID [Concomitant]
     Active Substance: FOLIC ACID
     Indication: Product used for unknown indication
     Route: 065
  22. PREDNISONE [Concomitant]
     Active Substance: PREDNISONE
     Indication: Product used for unknown indication
     Route: 065
  23. CYANOCOBALAMIN [Concomitant]
     Active Substance: CYANOCOBALAMIN
     Indication: Product used for unknown indication
     Dosage: 1000 MICROGRAM/ML
     Route: 065
  24. METHYLPHENIDATE HYDROCHLORIDE [Concomitant]
     Active Substance: METHYLPHENIDATE HYDROCHLORIDE
     Indication: Product used for unknown indication
     Dosage: DOSE: 5 MG
     Route: 065

REACTIONS (1)
  - Hepatic cancer [Fatal]
